FAERS Safety Report 8932816 (Version 2)
Quarter: 2012Q4

REPORT INFORMATION
  Report Type: 
  Country: US (occurrence: US)
  Receive Date: 20121129
  Receipt Date: 20121219
  Transmission Date: 20130627
  Serious: Yes (Hospitalization, Other)
  Sender: FDA-Public Use
  Company Number: US-ELI_LILLY_AND_COMPANY-US201211006310

PATIENT
  Sex: Female

DRUGS (1)
  1. HUMULIN NPH [Suspect]
     Indication: TYPE 2 DIABETES MELLITUS
     Dosage: 36 u, each evening

REACTIONS (7)
  - Female reproductive neoplasm [Unknown]
  - Injection site bruising [Unknown]
  - Injection site haemorrhage [Unknown]
  - Impaired healing [Unknown]
  - Weight decreased [Unknown]
  - Blood glucose increased [Unknown]
  - Drug ineffective [Unknown]
